FAERS Safety Report 8830468 (Version 2)
Quarter: 2012Q4

REPORT INFORMATION
  Report Type: 
  Country: NO (occurrence: NO)
  Receive Date: 20121009
  Receipt Date: 20121019
  Transmission Date: 20130627
  Serious: Yes (Life-Threatening)
  Sender: FDA-Public Use
  Company Number: NO-BAYER-2012-100803

PATIENT
  Age: 54 Year
  Sex: Female

DRUGS (1)
  1. NEXAVAR [Suspect]
     Indication: RENAL CANCER
     Dosage: 400 mg, BID
     Route: 048
     Dates: start: 20120830, end: 20120831

REACTIONS (2)
  - Hepatitis [Recovering/Resolving]
  - Pleuritic pain [Recovering/Resolving]
